FAERS Safety Report 8595362-8 (Version None)
Quarter: 2012Q3

REPORT INFORMATION
  Report Type: 
  Country: None (occurrence: None)
  Receive Date: 20120815
  Receipt Date: 20120810
  Transmission Date: 20120928
  Serious: Yes (Other)
  Sender: FDA-Public Use
  Company Number: PHEH2012US015729

PATIENT
  Sex: Male

DRUGS (5)
  1. COUMADIN [Concomitant]
     Dosage: UNK UKN, UNK
  2. METOPROLOL TARTRATE [Concomitant]
     Dosage: UNK UKN, UNK
  3. FOLIC ACID [Concomitant]
     Dosage: UNK UKN, UNK
  4. DIOVAN [Suspect]
     Dosage: 2 DF (80 MG), QD
  5. DIOVAN [Suspect]
     Dosage: 160 MG, UNK

REACTIONS (2)
  - DYSPHAGIA [None]
  - ATRIAL FIBRILLATION [None]
